FAERS Safety Report 8233617-7 (Version None)
Quarter: 2012Q1

REPORT INFORMATION
  Report Type: 
  Country: None (occurrence: None)
  Receive Date: 20120326
  Receipt Date: 20120316
  Transmission Date: 20120608
  Serious: Yes (Hospitalization)
  Sender: FDA-Public Use
  Company Number: PHHO2011IL13563

PATIENT
  Sex: Male

DRUGS (7)
  1. ATACAND [Suspect]
  2. ASPIRIN [Concomitant]
  3. ANGIOTENSIN CONVERTING ENZYME BLOCKERS [Concomitant]
  4. LOPRESSOR [Suspect]
  5. REPAGLINIDE [Concomitant]
     Indication: DIABETES MELLITUS
     Dosage: 6 MG, UNK
  6. LANTUS [Concomitant]
     Indication: DIABETES MELLITUS
     Dosage: 18 IU, UNK
  7. METFORMIN HCL [Concomitant]
     Indication: DIABETES MELLITUS
     Dosage: 2550 MG, UNK
     Dates: end: 20110619

REACTIONS (4)
  - LEFT VENTRICULAR HYPERTROPHY [None]
  - FALL [None]
  - PRESYNCOPE [None]
  - PULMONARY HYPERTENSION [None]
